FAERS Safety Report 4845976-3 (Version None)
Quarter: 2005Q4

REPORT INFORMATION
  Report Type: 
  Country: None (occurrence: None)
  Receive Date: 20051206
  Receipt Date: 20051125
  Transmission Date: 20060501
  Serious: Yes (Other)
  Sender: FDA-Public Use
  Company Number: SE-JNJFOC-20051102121

PATIENT
  Age: 32 Year
  Sex: Female

DRUGS (2)
  1. REMICADE [Suspect]
     Route: 042
  2. ENBREL [Suspect]
     Route: 058

REACTIONS (2)
  - MALIGNANT MELANOMA [None]
  - PERIVASCULAR DERMATITIS [None]
